FAERS Safety Report 7396308-0 (Version None)
Quarter: 2011Q2

REPORT INFORMATION
  Report Type: 
  Country: None (occurrence: None)
  Receive Date: 20110406
  Receipt Date: 20110324
  Transmission Date: 20111010
  Serious: Yes (Hospitalization)
  Sender: FDA-Public Use
  Company Number: JP-JNJFOC-20110400657

PATIENT
  Age: 59 Year
  Sex: Female

DRUGS (6)
  1. CALTAN [Concomitant]
     Route: 048
  2. AMLODIN [Concomitant]
     Route: 065
  3. BASEN [Concomitant]
     Route: 065
  4. ITRIZOLE [Suspect]
     Indication: BRONCHOPULMONARY ASPERGILLOSIS
     Route: 048
  5. ADONA [Concomitant]
     Route: 065
  6. NOVORAPID [Concomitant]
     Route: 065

REACTIONS (2)
  - RESPIRATORY FAILURE [None]
  - INTERSTITIAL LUNG DISEASE [None]
